FAERS Safety Report 9250345 (Version 1)
Quarter: 2013Q1

REPORT INFORMATION
  Report Type: Spontaneous
  Country: US (occurrence: None)
  Receive Date: 20130305
  Receipt Date: 20130305
  Transmission Date: 20140127
  Serious: Yes (Hospitalization)
  Sender: FDA-Public Use
  Company Number: 163-21880-12062828

PATIENT
  Sex: Male

DRUGS (10)
  1. REVLIMID [Concomitant]
     Indication: PLASMA CELL MYELOMA
     Dosage: 5MG AMD 10 MG ALERNATING, QOD , PO
     Dates: start: 200812
  2. ACYCLOVIR (ACYCLOVIR) [Concomitant]
  3. ATENOLOL (ATENOLOL) (UNKNOWN) [Concomitant]
  4. ALLOPURINOL [Concomitant]
  5. PREDNISONE (PREDNISONE) (UNKNOWN) [Concomitant]
  6. PREGABALIN (PREGABALIN) [Concomitant]
  7. ARMODAFINIL (ARMODAFINIL) (UNKNOWN) [Concomitant]
  8. CITALOPRAM (CITALOPRAM) (UNKNOWN) [Concomitant]
  9. RANITIDINE (RANIDINE) (UNKNOWN) [Concomitant]
  10. DECADRON [Concomitant]

REACTIONS (2)
  - Respiratory tract infection viral [None]
  - Rash [None]
